FAERS Safety Report 5594761-6 (Version None)
Quarter: 2008Q1

REPORT INFORMATION
  Report Type: 
  Country: None (occurrence: None)
  Receive Date: 20080117
  Receipt Date: 20080114
  Transmission Date: 20080703
  Serious: Yes (Hospitalization)
  Sender: FDA-Public Use
  Company Number: A0523029A

PATIENT
  Age: 74 Year
  Sex: Male
  Weight: 96.2 kg

DRUGS (1)
  1. ROSIGLITAZONE [Suspect]
     Dosage: 4MG PER DAY
     Route: 048
     Dates: start: 20040623

REACTIONS (2)
  - ABDOMINAL PAIN [None]
  - CHOLANGITIS [None]
